FAERS Safety Report 20617792 (Version 1)
Quarter: 2022Q1

REPORT INFORMATION
  Report Type: Spontaneous
  Country: US (occurrence: US)
  Receive Date: 20220321
  Receipt Date: 20220321
  Transmission Date: 20220423
  Serious: Yes (Hospitalization, Other)
  Sender: FDA-Public Use
  Company Number: US-GLAXOSMITHKLINE-USCH2022GSK011136

PATIENT
  Age: 21 Year
  Sex: Male

DRUGS (1)
  1. IBUPROFEN [Suspect]
     Active Substance: IBUPROFEN
     Indication: Headache
     Dosage: UNK

REACTIONS (6)
  - Stevens-Johnson syndrome [Recovering/Resolving]
  - Dermatitis bullous [Recovering/Resolving]
  - Oral disorder [Recovering/Resolving]
  - Conjunctival hyperaemia [Recovering/Resolving]
  - Photophobia [Recovering/Resolving]
  - Oesophagitis [Recovering/Resolving]
